FAERS Safety Report 6878870-7 (Version None)
Quarter: 2010Q3

REPORT INFORMATION
  Report Type: 
  Country: None (occurrence: None)
  Receive Date: 20100728
  Receipt Date: 20100716
  Transmission Date: 20110219
  Serious: Yes (Hospitalization)
  Sender: FDA-Public Use
  Company Number: GXKR2010LT07942

PATIENT
  Age: 23 Year
  Sex: Male

DRUGS (7)
  1. VANCOMYCIN (NGX) [Suspect]
     Indication: ANTIBIOTIC PROPHYLAXIS
     Dosage: 1 G, BID, 14 G IN TOTAL
     Route: 065
  2. VANCOMYCIN (NGX) [Suspect]
     Indication: ANTIBIOTIC RESISTANT STAPHYLOCOCCUS TEST POSITIVE
     Dosage: 1 G DISSOLVED IN 250 ML OF ISOTONIC SOLUTION AT A RATE OF 10 MG/MIN
  3. MERONEM [Concomitant]
     Indication: ANTIBIOTIC THERAPY
     Dosage: 1 G, TID, 27 G IN TOTAL
     Route: 065
  4. PREDNISOLONE [Concomitant]
     Indication: JUVENILE ARTHRITIS
     Dosage: 60 MG/DAY
     Route: 048
  5. METHYLPREDNISOLONE [Concomitant]
     Indication: JUVENILE ARTHRITIS
     Dosage: 1 G/DAY, 3 G IN TOTAL
     Route: 042
  6. CASPOFUNGIN [Concomitant]
     Indication: FUNGAL SEPSIS
     Dosage: UNK
  7. ISOTONIC SOLUTIONS [Concomitant]
     Dosage: 250 ML, UNK

REACTIONS (14)
  - ANAPHYLACTIC REACTION [None]
  - BLOOD PRESSURE DECREASED [None]
  - COLD SWEAT [None]
  - DYSPNOEA [None]
  - FLUSHING [None]
  - HAEMORRHAGIC DISORDER [None]
  - HEPATIC ENCEPHALOPATHY [None]
  - HEPATIC FAILURE [None]
  - PHARYNGITIS [None]
  - RASH [None]
  - RENAL FAILURE [None]
  - RESPIRATORY FAILURE [None]
  - TACHYCARDIA [None]
  - TREMOR [None]
